FAERS Safety Report 6075667-5 (Version None)
Quarter: 2009Q1

REPORT INFORMATION
  Report Type: 
  Country: None (occurrence: None)
  Receive Date: 20090121
  Receipt Date: 20080312
  Transmission Date: 20090719
  Serious: Yes (Hospitalization, Other)
  Sender: FDA-Public Use
  Company Number: US-WYE-H03072908

PATIENT
  Age: 44 Year
  Sex: Female
  Weight: 63.56 kg

DRUGS (7)
  1. PREMPRO [Suspect]
     Indication: HOT FLUSH
     Dosage: ORAL ; ORAL ; ORAL
     Route: 048
     Dates: start: 20060901, end: 20060901
  2. PREMPRO [Suspect]
     Indication: INSOMNIA
     Dosage: ORAL ; ORAL ; ORAL
     Route: 048
     Dates: start: 20060901, end: 20060901
  3. PREMPRO [Suspect]
     Indication: HOT FLUSH
     Dosage: ORAL ; ORAL ; ORAL
     Route: 048
     Dates: end: 20070501
  4. PREMPRO [Suspect]
     Indication: INSOMNIA
     Dosage: ORAL ; ORAL ; ORAL
     Route: 048
     Dates: end: 20070501
  5. PREMPRO [Suspect]
     Indication: HOT FLUSH
     Dosage: ORAL ; ORAL ; ORAL
     Route: 048
     Dates: start: 20061101
  6. PREMPRO [Suspect]
     Indication: INSOMNIA
     Dosage: ORAL ; ORAL ; ORAL
     Route: 048
     Dates: start: 20061101
  7. DEPAKOTE [Concomitant]

REACTIONS (1)
  - BREAST CANCER [None]
